FAERS Safety Report 8067085-5 (Version None)
Quarter: 2012Q1

REPORT INFORMATION
  Report Type: 
  Country: None (occurrence: None)
  Receive Date: 20120124
  Receipt Date: 20120119
  Transmission Date: 20120608
  Serious: Yes (Other)
  Sender: FDA-Public Use
  Company Number: GB-PFIZER INC-2012016368

PATIENT
  Age: 78 Year
  Sex: Male
  Weight: 102.1 kg

DRUGS (7)
  1. FUROSEMIDE [Concomitant]
     Dosage: UNK
     Dates: start: 20110930
  2. PARACETAMOL [Concomitant]
     Dosage: UNK
     Dates: start: 20111031
  3. CETRABEN [Concomitant]
     Dosage: UNK
     Dates: start: 20110915
  4. DALTEPARIN SODIUM [Concomitant]
     Dosage: UNK
     Dates: start: 20111229
  5. CLINDAMYCIN HCL [Suspect]
  6. CLINDAMYCIN HCL [Suspect]
     Dosage: UNK
     Dates: start: 20111229, end: 20120109
  7. SIMVASTATIN [Concomitant]
     Dosage: UNK
     Dates: start: 20110930

REACTIONS (1)
  - RASH MACULAR [None]
